FAERS Safety Report 8900325 (Version 1)
Quarter: 2012Q4

REPORT INFORMATION
  Report Type: Report from Study
  Country: US (occurrence: US)
  Receive Date: 20121109
  Receipt Date: 20121109
  Transmission Date: 20130627
  Serious: Yes (Hospitalization)
  Sender: FDA-Public Use
  Company Number: US-BAYER-2012-116714

PATIENT
  Age: 80 Year
  Sex: Female

DRUGS (11)
  1. BAYER GENUINE ASPIRIN ORIGINAL STRENGTH [Suspect]
  2. SAXAGLIPTIN [Suspect]
     Indication: TYPE 2 DIABETES MELLITUS
     Dosage: UNK
     Dates: start: 20110201, end: 20120324
  3. LANTUS [Suspect]
     Indication: TYPE 2 DIABETES MELLITUS
     Dosage: 80 ui
  4. HUMALOG [Suspect]
     Indication: TYPE 2 DIABETES MELLITUS
  5. GLIMEPIRIDE [Suspect]
     Indication: TYPE 2 DIABETES MELLITUS
     Dosage: 4 mg
  6. PLACEBO [Suspect]
     Indication: TYPE 2 DIABETES MELLITUS
     Dosage: UNK
     Dates: start: 20110211, end: 20120224
  7. BETA BLOCKING AGENTS [Concomitant]
  8. ADP ANTAGONIST [Concomitant]
  9. ANGIOTENSIN II ANTAGONISTS [Concomitant]
  10. CALCIUM ANTAGONIST [Concomitant]
  11. STATIN [Concomitant]

REACTIONS (4)
  - Duodenal ulcer [None]
  - Gastrointestinal haemorrhage [Recovered/Resolved]
  - Asthenia [Recovered/Resolved]
  - Faeces discoloured [Recovered/Resolved]
